FAERS Safety Report 6463859-2 (Version None)
Quarter: 2009Q4

REPORT INFORMATION
  Report Type: 
  Country: None (occurrence: None)
  Receive Date: 20091201
  Receipt Date: 20091123
  Transmission Date: 20100525
  Serious: Yes (Death, Other)
  Sender: FDA-Public Use
  Company Number: BR-ROCHE-662369

PATIENT
  Sex: Female
  Weight: 48 kg

DRUGS (1)
  1. XELODA [Suspect]
     Dosage: DRUG TAKEN FOR 14 DAYS FOLLOWED BY 10 DAYS REST, DRUG NOT ADMINISTERED FOR 25 DAYS (INTERRUPTED)
     Route: 048
     Dates: start: 20090801

REACTIONS (10)
  - ASTHENIA [None]
  - DEPRESSION [None]
  - DRY SKIN [None]
  - MALIGNANT NEOPLASM PROGRESSION [None]
  - MULTI-ORGAN FAILURE [None]
  - NAIL DISCOLOURATION [None]
  - NAUSEA [None]
  - RESPIRATORY FAILURE [None]
  - SKIN DISCOLOURATION [None]
  - VOMITING [None]
